FAERS Safety Report 6619133-4 (Version None)
Quarter: 2010Q1

REPORT INFORMATION
  Report Type: 
  Country: None (occurrence: None)
  Receive Date: 20100305
  Receipt Date: 20100305
  Transmission Date: 20100710
  Serious: Yes (Hospitalization)
  Sender: FDA-Public Use
  Company Number: None

PATIENT
  Sex: Male
  Weight: 66.4 kg

DRUGS (6)
  1. METHOTREXATE [Suspect]
     Dosage: 825 MG
     Dates: end: 20091207
  2. PEG-L ASPARAGINASE (PEGASPARGASE, ONCOSPAR) [Suspect]
     Dosage: 4500 IU
     Dates: end: 20091118
  3. VINCRISTINE SULFATE [Suspect]
     Dosage: 6 MG
     Dates: end: 20091207
  4. BACTRIM [Concomitant]
  5. CEFEPIME [Concomitant]
  6. METHYLPREDNISOLONE [Concomitant]

REACTIONS (7)
  - BACK PAIN [None]
  - BLOOD CALCIUM DECREASED [None]
  - BLOOD PHOSPHORUS INCREASED [None]
  - BLOOD URIC ACID INCREASED [None]
  - HEADACHE [None]
  - PYREXIA [None]
  - RENAL FAILURE [None]
